FAERS Safety Report 6900017-9 (Version None)
Quarter: 2010Q3

REPORT INFORMATION
  Report Type: 
  Country: None (occurrence: None)
  Receive Date: 20100708
  Receipt Date: 20090905
  Transmission Date: 20110219
  Serious: Yes (Other)
  Sender: FDA-Public Use
  Company Number: 2009267007

PATIENT
  Age: 39 Year
  Sex: Female
  Weight: 72.6 kg

DRUGS (1)
  1. CHANTIX [Suspect]
     Indication: SMOKING CESSATION THERAPY
     Dosage: 1 MG, 2X/DAY
     Dates: start: 20090801

REACTIONS (3)
  - AGGRESSION [None]
  - CONFUSIONAL STATE [None]
  - MANIA [None]
